FAERS Safety Report 11664305 (Version 1)
Quarter: 2015Q4

REPORT INFORMATION
  Report Type: Spontaneous
  Country: US (occurrence: None)
  Receive Date: 20151026
  Receipt Date: 20151026
  Transmission Date: 20160304
  Serious: No
  Sender: FDA-Public Use
  Company Number: None

PATIENT
  Age: 57 Year
  Sex: Female
  Weight: 160 kg

DRUGS (10)
  1. FISH OIL [Concomitant]
     Active Substance: FISH OIL
  2. VITAMIN D [Concomitant]
     Active Substance: CHOLECALCIFEROL
  3. SPIRULINA [Concomitant]
     Active Substance: SPIRULINA
  4. COLLESTIPOL [Concomitant]
  5. GARLIC. [Concomitant]
     Active Substance: GARLIC
  6. GRAPESEED [Concomitant]
  7. VISION SUPPLEMENT [Concomitant]
  8. VITAMIN C [Concomitant]
     Active Substance: ASCORBIC ACID
  9. PENNSAID [Suspect]
     Active Substance: DICLOFENAC SODIUM
     Indication: ARTHRALGIA
     Dosage: APPLIED TO A SURFACE, USUALLY THE SKIN
     Route: 061
     Dates: start: 20150925, end: 20151024
  10. MULTIPLE VITAMIN [Concomitant]
     Active Substance: VITAMINS

REACTIONS (4)
  - Chills [None]
  - Nausea [None]
  - Abdominal pain upper [None]
  - Insomnia [None]

NARRATIVE: CASE EVENT DATE: 20151024
